FAERS Safety Report 16571883 (Version 2)
Quarter: 2019Q3

REPORT INFORMATION
  Report Type: Spontaneous
  Country: BR (occurrence: BR)
  Receive Date: 20190715
  Receipt Date: 20190905
  Transmission Date: 20191004
  Serious: Yes (Other)
  Sender: FDA-Public Use
  Company Number: BR-BRISTOL-MYERS SQUIBB COMPANY-BMS-2019-067860

PATIENT
  Sex: Male

DRUGS (1)
  1. GLIFAGE XR [Suspect]
     Active Substance: METFORMIN HYDROCHLORIDE
     Indication: DIABETES MELLITUS
     Dosage: 1 DOSAGE FORM, TID
     Route: 048
     Dates: start: 20190601

REACTIONS (5)
  - Dizziness [None]
  - Amnesia [None]
  - Loss of consciousness [Recovered/Resolved]
  - Blood glucose decreased [None]
  - Amnesia [Recovered/Resolved]

NARRATIVE: CASE EVENT DATE: 2019
